FAERS Safety Report 18687983 (Version 1)
Quarter: 2020Q4

REPORT INFORMATION
  Report Type: Spontaneous
  Country: US (occurrence: US)
  Receive Date: 20201231
  Receipt Date: 20201231
  Transmission Date: 20210114
  Serious: No
  Sender: FDA-Public Use
  Company Number: US-BAYER-2020-287458

PATIENT
  Sex: Female

DRUGS (2)
  1. ESTRADIOL HEMIHYDRATE [Suspect]
     Active Substance: ESTRADIOL HEMIHYDRATE
     Dosage: UNK
     Route: 062
     Dates: start: 202006
  2. PROGESTERON [Concomitant]
     Active Substance: PROGESTERONE

REACTIONS (2)
  - Application site erythema [None]
  - Application site irritation [None]

NARRATIVE: CASE EVENT DATE: 2020
